FAERS Safety Report 6621083-4 (Version None)
Quarter: 2010Q1

REPORT INFORMATION
  Report Type: 
  Country: None (occurrence: None)
  Receive Date: 20100309
  Receipt Date: 20100301
  Transmission Date: 20100710
  Serious: Yes (Other)
  Sender: FDA-Public Use
  Company Number: B0623897A

PATIENT
  Age: 63 Year
  Sex: Male

DRUGS (4)
  1. AUGMENTIN [Suspect]
     Indication: DRUG USE FOR UNKNOWN INDICATION
     Dosage: 1G THREE TIMES PER DAY
     Route: 048
     Dates: start: 20090923, end: 20091009
  2. CHLORHEXIDINE GLUCONATE [Concomitant]
  3. VITAMIN K2 [Concomitant]
  4. VITAMINS + MINERALS [Concomitant]

REACTIONS (23)
  - BREAST MASS [None]
  - BREAST SWELLING [None]
  - CONDITION AGGRAVATED [None]
  - CONTUSION [None]
  - DISCOMFORT [None]
  - DRY SKIN [None]
  - FATIGUE [None]
  - GYNAECOMASTIA [None]
  - HEADACHE [None]
  - MUSCLE ATROPHY [None]
  - OESTROGENIC EFFECT [None]
  - OROPHARYNGEAL PAIN [None]
  - PAIN [None]
  - PH URINE INCREASED [None]
  - PROTEIN URINE PRESENT [None]
  - PRURITUS [None]
  - SKIN ATROPHY [None]
  - SPECIFIC GRAVITY URINE DECREASED [None]
  - URINE ABNORMALITY [None]
  - VENOUS HAEMORRHAGE [None]
  - WEIGHT DECREASED [None]
  - WHITE BLOOD CELLS URINE POSITIVE [None]
  - YELLOW SKIN [None]
